FAERS Safety Report 6730938-1 (Version None)
Quarter: 2010Q2

REPORT INFORMATION
  Report Type: 
  Country: None (occurrence: None)
  Receive Date: 20100514
  Receipt Date: 20100506
  Transmission Date: 20101027
  Serious: Yes (Other)
  Sender: FDA-Public Use
  Company Number: 7004034

PATIENT
  Sex: Male

DRUGS (1)
  1. REBIF [Suspect]

REACTIONS (2)
  - DIZZINESS [None]
  - PARALYSIS [None]
